FAERS Safety Report 14665376 (Version 12)
Quarter: 2019Q1

REPORT INFORMATION
  Report Type: Spontaneous
  Country: CA (occurrence: CA)
  Receive Date: 20180321
  Receipt Date: 20190322
  Transmission Date: 20190417
  Serious: Yes (Other)
  Sender: FDA-Public Use
  Company Number: CA-CELLTRION INC.-2018CA018274

PATIENT

DRUGS (15)
  1. INFLECTRA [Suspect]
     Active Substance: INFLIXIMAB-DYYB
     Dosage: 10 MG/KG, EVERY 0, 2, 6 AND EVERY 8 WEEKS
     Route: 042
     Dates: start: 20180523, end: 20180523
  2. INFLECTRA [Suspect]
     Active Substance: INFLIXIMAB-DYYB
     Dosage: 10 MG/KG, EVERY 0, 2, 6 AND EVERY 8 WEEKS
     Route: 042
     Dates: start: 20180718, end: 20180718
  3. INFLECTRA [Suspect]
     Active Substance: INFLIXIMAB-DYYB
     Dosage: 10 MG/KG, EVERY 0, 2, 6 AND EVERY 8 WEEKS
     Route: 042
     Dates: start: 20180523, end: 20180523
  4. CALCIUM [Concomitant]
     Active Substance: CALCIUM
     Dosage: UNK
  5. INFLECTRA [Suspect]
     Active Substance: INFLIXIMAB-DYYB
     Dosage: 10 MG/KG, EVERY 0, 2, 6 AND EVERY 8 WEEKS
     Route: 042
     Dates: start: 20180328, end: 20180328
  6. INFLECTRA [Suspect]
     Active Substance: INFLIXIMAB-DYYB
     Dosage: 10 MG/KG, EVERY 6 WEEKS
     Route: 042
     Dates: start: 20181002, end: 20181002
  7. INFLECTRA [Suspect]
     Active Substance: INFLIXIMAB-DYYB
     Dosage: 10 MG/KG, EVERY 6 WEEKS
     Route: 042
     Dates: start: 20181231, end: 20181231
  8. CORTISONE [Concomitant]
     Active Substance: CORTISONE\HYDROCORTISONE
     Dosage: UNK
  9. INFLECTRA [Suspect]
     Active Substance: INFLIXIMAB-DYYB
     Indication: COLITIS ULCERATIVE
     Dosage: 10 MG/KG, EVERY 0, 2, 6 AND EVERY 8 WEEKS
     Route: 042
     Dates: start: 20180214
  10. INFLECTRA [Suspect]
     Active Substance: INFLIXIMAB-DYYB
     Dosage: 10 MG/KG, EVERY 0, 2, 6 AND EVERY 8 WEEKS
     Route: 042
     Dates: start: 20180523, end: 20180523
  11. INFLECTRA [Suspect]
     Active Substance: INFLIXIMAB-DYYB
     Dosage: 10 MG/KG, EVERY 0, 2, 6 AND EVERY 8 WEEKS
     Route: 042
     Dates: start: 20180718, end: 20180718
  12. INFLECTRA [Suspect]
     Active Substance: INFLIXIMAB-DYYB
     Dosage: 10 MG/KG, EVERY 6 WEEKS
     Route: 042
     Dates: start: 20181113, end: 20181113
  13. INFLECTRA [Suspect]
     Active Substance: INFLIXIMAB-DYYB
     Dosage: 10 MG/KG, EVERY 0, 2, 6 AND EVERY 8 WEEKS
     Route: 042
     Dates: start: 20180228, end: 20180228
  14. INFLECTRA [Suspect]
     Active Substance: INFLIXIMAB-DYYB
     Dosage: 10 MG/KG, EVERY 0, 2, 6 AND EVERY 8 WEEKS
     Route: 042
     Dates: start: 20180523, end: 20180523
  15. INFLECTRA [Suspect]
     Active Substance: INFLIXIMAB-DYYB
     Dosage: 10 MG/KG, EVERY 6 WEEKS
     Route: 042
     Dates: start: 20180828

REACTIONS (17)
  - Arthropathy [Unknown]
  - Myalgia [Not Recovered/Not Resolved]
  - Drug level below therapeutic [Unknown]
  - Blood pressure fluctuation [Not Recovered/Not Resolved]
  - Dry skin [Unknown]
  - Musculoskeletal disorder [Unknown]
  - Stress [Not Recovered/Not Resolved]
  - Condition aggravated [Not Recovered/Not Resolved]
  - Weight increased [Unknown]
  - Fatigue [Unknown]
  - Drug ineffective [Unknown]
  - Product use issue [Unknown]
  - Hypertension [Unknown]
  - Asthenia [Unknown]
  - Inflammation [Unknown]
  - C-reactive protein increased [Recovering/Resolving]
  - Infection [Unknown]

NARRATIVE: CASE EVENT DATE: 20180228
